FAERS Safety Report 20393514 (Version 1)
Quarter: 2022Q1

REPORT INFORMATION
  Report Type: Spontaneous
  Country: US (occurrence: US)
  Receive Date: 20220128
  Receipt Date: 20220128
  Transmission Date: 20220424
  Serious: Yes (Other)
  Sender: FDA-Public Use
  Company Number: US-JNJFOC-20220143304

PATIENT
  Age: 88 Year
  Sex: Female
  Weight: 90.9 kg

DRUGS (18)
  1. TOPIRAMATE [Suspect]
     Active Substance: TOPIRAMATE
     Indication: Headache
     Route: 048
     Dates: start: 20210407
  2. TOPIRAMATE [Suspect]
     Active Substance: TOPIRAMATE
     Indication: Migraine prophylaxis
  3. AIMOVIG [Suspect]
     Active Substance: ERENUMAB-AOOE
     Indication: Migraine prophylaxis
     Route: 058
     Dates: start: 202103
  4. TOPROL XL [Concomitant]
     Active Substance: METOPROLOL SUCCINATE
  5. TYLENOL [Concomitant]
     Active Substance: ACETAMINOPHEN
  6. LASIX [Concomitant]
     Active Substance: FUROSEMIDE
  7. LISINOPRIL [Concomitant]
     Active Substance: LISINOPRIL
  8. PRADAXA [Concomitant]
     Active Substance: DABIGATRAN ETEXILATE MESYLATE
  9. CALCIUM CARBONATE\CHOLECALCIFEROL [Concomitant]
     Active Substance: CALCIUM CARBONATE\CHOLECALCIFEROL
  10. GLUCOSAMINE CHONDROITIN SULFATE [Concomitant]
  11. SYNTHROID [Concomitant]
     Active Substance: LEVOTHYROXINE SODIUM
  12. ZESTRIL [Concomitant]
     Active Substance: LISINOPRIL
  13. MELATONIN [Concomitant]
     Active Substance: MELATONIN
  14. OMEPRAZOLE [Concomitant]
     Active Substance: OMEPRAZOLE
  15. MIRALAX [Concomitant]
     Active Substance: POLYETHYLENE GLYCOL 3350
  16. GLYCOLAX [Concomitant]
     Active Substance: POLYETHYLENE GLYCOL 3350
  17. KLOR-CON M20 [Concomitant]
     Active Substance: POTASSIUM CHLORIDE
  18. ESGIC [Concomitant]
     Active Substance: ACETAMINOPHEN\BUTALBITAL\CAFFEINE

REACTIONS (4)
  - Atrial fibrillation [Unknown]
  - Cardiac disorder [Unknown]
  - Feeling abnormal [Unknown]
  - Migraine with aura [Unknown]
